FAERS Safety Report 5363056-8 (Version None)
Quarter: 2007Q2

REPORT INFORMATION
  Report Type: 
  Country: None (occurrence: None)
  Receive Date: 20070615
  Receipt Date: 20070604
  Transmission Date: 20071010
  Serious: Yes (Hospitalization)
  Sender: FDA-Public Use
  Company Number: ENZ-2007-044

PATIENT
  Age: 62 Year
  Sex: Female

DRUGS (6)
  1. VIOKASE 16 (PANCRELIPASE) [Suspect]
     Dosage: 2 TAB DAILY, ORAL
     Route: 048
  2. SU-011,248 (SUNTINIB MALATE) [Suspect]
     Indication: PANCREATIC CARCINOMA
     Dosage: 25 MG, DAY 1 TO 28, ORAL
     Route: 048
     Dates: start: 20060823
  3. BEVACIZUMAB [Suspect]
     Indication: PANCREATIC CARCINOMA
     Dosage: 2 MG/KG, OVER 90-30 MINUTES, DAY 1, 15 AND 29, INTRAVENOUS
     Route: 042
     Dates: start: 20060823
  4. CELEBREX [Suspect]
     Dosage: 100 MG TWICE DAILY, ORAL
     Route: 048
  5. IBUPROFEN [Suspect]
     Dosage: 800 MG AT BEDTIME
  6. NEXIUM [Suspect]
     Dosage: 40 MG DAILY

REACTIONS (9)
  - ABDOMINAL PAIN [None]
  - BLOOD POTASSIUM DECREASED [None]
  - COUGH [None]
  - DEHYDRATION [None]
  - DYSPNOEA [None]
  - INFECTION [None]
  - NAUSEA [None]
  - PAIN [None]
  - PYREXIA [None]
